FAERS Safety Report 16904891 (Version 1)
Quarter: 2019Q4

REPORT INFORMATION
  Report Type: Spontaneous
  Country: US (occurrence: US)
  Receive Date: 20190819
  Receipt Date: 20190819
  Transmission Date: 20200122
  Serious: Yes (Hospitalization)
  Sender: FDA-Public Use
  Company Number: None

PATIENT
  Age: 48 Year
  Sex: Female

DRUGS (11)
  1. DOXEPIN [Concomitant]
     Active Substance: DOXEPIN
  2. GABAPENTIN. [Concomitant]
     Active Substance: GABAPENTIN
  3. LECOTHYROXIN [Concomitant]
  4. CYCLOBENZAPR [Concomitant]
     Active Substance: CYCLOBENZAPRINE
  5. OXYCODONE [Concomitant]
     Active Substance: OXYCODONE
  6. ATENOLOL. [Concomitant]
     Active Substance: ATENOLOL
  7. METHOTREXATE. [Concomitant]
     Active Substance: METHOTREXATE
  8. TRAMADOL. [Concomitant]
     Active Substance: TRAMADOL
  9. CIMZIA [Suspect]
     Active Substance: CERTOLIZUMAB PEGOL
     Indication: RHEUMATOID ARTHRITIS
     Dosage: ?          OTHER FREQUENCY:Q 4 WKS ;?
     Route: 058
     Dates: start: 20180531
  10. ASPIRIN. [Concomitant]
     Active Substance: ASPIRIN
  11. ETODOLAC. [Concomitant]
     Active Substance: ETODOLAC

REACTIONS (3)
  - Condition aggravated [None]
  - Surgery [None]
  - Therapy cessation [None]
